FAERS Safety Report 6092548-1 (Version None)
Quarter: 2009Q1

REPORT INFORMATION
  Report Type: 
  Country: None (occurrence: None)
  Receive Date: 20090225
  Receipt Date: 20090220
  Transmission Date: 20090719
  Serious: Yes (Hospitalization)
  Sender: FDA-Public Use
  Company Number: US-ELI_LILLY_AND_COMPANY-US200902005703

PATIENT
  Sex: Male

DRUGS (6)
  1. HUMULIN 70/30 [Suspect]
  2. METOPROLOL [Concomitant]
  3. VYTORIN [Concomitant]
  4. NIASPAN [Concomitant]
  5. PLAVIX [Concomitant]
  6. LISINOPRIL [Concomitant]

REACTIONS (1)
  - LOCALISED INFECTION [None]
